FAERS Safety Report 17930441 (Version 1)
Quarter: 2020Q2

REPORT INFORMATION
  Report Type: Spontaneous
  Country: US (occurrence: US)
  Receive Date: 20200623
  Receipt Date: 20200623
  Transmission Date: 20200714
  Serious: No
  Sender: FDA-Public Use
  Company Number: US-MYLANLABS-2020M1056404

PATIENT
  Sex: Female

DRUGS (1)
  1. ESTRADIOL. [Suspect]
     Active Substance: ESTRADIOL
     Indication: PRODUCT USED FOR UNKNOWN INDICATION
     Dosage: TWICE WEEKLY

REACTIONS (4)
  - Application site erythema [Not Recovered/Not Resolved]
  - Product adhesion issue [Unknown]
  - Application site irritation [Not Recovered/Not Resolved]
  - Dermatitis [Not Recovered/Not Resolved]
